FAERS Safety Report 7677687-3 (Version None)
Quarter: 2011Q3

REPORT INFORMATION
  Report Type: 
  Country: None (occurrence: None)
  Receive Date: 20110811
  Receipt Date: 20110801
  Transmission Date: 20111222
  Serious: Yes (Other)
  Sender: FDA-Public Use
  Company Number: PHHY2011US62405

PATIENT
  Sex: Female

DRUGS (2)
  1. GILENYA [Suspect]
     Indication: RELAPSING-REMITTING MULTIPLE SCLEROSIS
     Dosage: 0.5 MG, DAILY
     Route: 048
     Dates: start: 20110415
  2. RITALIN [Concomitant]

REACTIONS (5)
  - SUNBURN [None]
  - TOOTH INFECTION [None]
  - DENTAL CARIES [None]
  - TOOTHACHE [None]
  - HEADACHE [None]
